FAERS Safety Report 4840395-8 (Version None)
Quarter: 2005Q4

REPORT INFORMATION
  Report Type: 
  Country: None (occurrence: None)
  Receive Date: 20051023
  Receipt Date: 20050719
  Transmission Date: 20060501
  Serious: Yes (Other)
  Sender: FDA-Public Use
  Company Number: USA-2005-0020240

PATIENT
  Age: 42 Year
  Sex: Male

DRUGS (5)
  1. PALLADONE [Suspect]
     Indication: PAIN
     Dosage: 64 MG, DAILY, ORAL
     Route: 048
     Dates: start: 20050507
  2. OXYCONTIN [Suspect]
     Indication: PAIN
     Dosage: 640 MG, Q12H
  3. ELAVIL [Concomitant]
  4. KLONOPIN [Concomitant]
  5. MIGRANAL [Concomitant]

REACTIONS (21)
  - ABDOMINAL PAIN [None]
  - AMNESIA [None]
  - CHEST PAIN [None]
  - CONSTIPATION [None]
  - DIZZINESS [None]
  - DRUG DEPENDENCE [None]
  - DRUG WITHDRAWAL SYNDROME [None]
  - DYSPNOEA [None]
  - FLATULENCE [None]
  - HOT FLUSH [None]
  - HYPERHIDROSIS [None]
  - INSOMNIA [None]
  - MUSCLE SPASMS [None]
  - MUSCULAR WEAKNESS [None]
  - NIGHTMARE [None]
  - PRURITUS [None]
  - TREMOR [None]
  - UNDERDOSE [None]
  - URINE OUTPUT DECREASED [None]
  - URTICARIA [None]
  - VISION BLURRED [None]
